FAERS Safety Report 7102736-0 (Version None)
Quarter: 2010Q4

REPORT INFORMATION
  Report Type: 
  Country: None (occurrence: None)
  Receive Date: 20101115
  Receipt Date: 20101103
  Transmission Date: 20110411
  Serious: Yes (Other)
  Sender: FDA-Public Use
  Company Number: PHHY2010US74547

PATIENT
  Sex: Female

DRUGS (2)
  1. FANAPT [Suspect]
     Dosage: 12 MG, BID
     Route: 048
  2. SAPHRIS [Concomitant]

REACTIONS (3)
  - ABNORMAL BEHAVIOUR [None]
  - DRUG INEFFECTIVE [None]
  - PSYCHOTIC DISORDER [None]
